FAERS Safety Report 12889274 (Version 2)
Quarter: 2016Q4

REPORT INFORMATION
  Report Type: Report from Study
  Country: US (occurrence: US)
  Receive Date: 20161027
  Receipt Date: 20161114
  Transmission Date: 20170207
  Serious: Yes (Death, Other)
  Sender: FDA-Public Use
  Company Number: US-BAYER-2016-193043

PATIENT
  Age: 52 Year
  Sex: Male

DRUGS (2)
  1. STIVARGA [Suspect]
     Active Substance: REGORAFENIB
     Indication: MALIGNANT CONNECTIVE TISSUE NEOPLASM
     Dosage: 160 MG DAILY DOSE
     Route: 048
     Dates: start: 20160930, end: 20161021
  2. STIVARGA [Suspect]
     Active Substance: REGORAFENIB
     Indication: SOFT TISSUE SARCOMA

REACTIONS (11)
  - Fall [None]
  - Asthenia [None]
  - Dyspnoea [Fatal]
  - Pneumonia [Fatal]
  - Hepatic failure [Fatal]
  - Pain [Recovering/Resolving]
  - Fatigue [None]
  - Decreased appetite [Recovering/Resolving]
  - Blood pressure increased [Recovering/Resolving]
  - Diarrhoea [None]
  - Transfusion [None]

NARRATIVE: CASE EVENT DATE: 201610
